FAERS Safety Report 6915325-5 (Version None)
Quarter: 2010Q3

REPORT INFORMATION
  Report Type: 
  Country: None (occurrence: None)
  Receive Date: 20100806
  Receipt Date: 20100806
  Transmission Date: 20110219
  Serious: Yes (Other)
  Sender: FDA-Public Use
  Company Number: None

PATIENT
  Age: 66 Year
  Sex: Female
  Weight: 83.5979 kg

DRUGS (1)
  1. PROTAMINE SULFATE [Suspect]
     Indication: HAEMOSTASIS
     Dosage: 100 MG ONCE INTRACORONARY
     Route: 022

REACTIONS (2)
  - HYPOTENSION [None]
  - PULMONARY ARTERIAL WEDGE PRESSURE INCREASED [None]
